FAERS Safety Report 20971275 (Version 2)
Quarter: 2022Q3

REPORT INFORMATION
  Report Type: Spontaneous
  Country: US (occurrence: US)
  Receive Date: 20220616
  Receipt Date: 20220810
  Transmission Date: 20221026
  Serious: No
  Sender: FDA-Public Use
  Company Number: US-SA-SAC20220613000699

PATIENT
  Age: 26 Year
  Sex: Male

DRUGS (7)
  1. DUPIXENT [Suspect]
     Active Substance: DUPILUMAB
     Indication: Dermatitis atopic
     Dosage: 300 MG, QOW
     Route: 058
     Dates: start: 202204
  2. ELIDEL [Concomitant]
     Active Substance: PIMECROLIMUS
     Indication: Dermatitis atopic
     Dosage: UNK
     Dates: start: 20220321
  3. FABIOR [Concomitant]
     Active Substance: TAZAROTENE
     Indication: Dermatitis atopic
     Dosage: UNK, FOAM
     Dates: start: 20220711
  4. FLUOCINONIDE [Concomitant]
     Active Substance: FLUOCINONIDE
     Indication: Dermatitis atopic
     Dosage: UNK, QD, SOLUTION
     Dates: start: 20220321
  5. HYDROCORTISONE [Concomitant]
     Active Substance: HYDROCORTISONE
     Indication: Dermatitis atopic
     Dosage: UNK UNK, QD
     Dates: start: 20220321
  6. DOXYCYCLINE [Concomitant]
     Active Substance: DOXYCYCLINE
     Indication: Dermatitis atopic
     Dosage: 200 MG, QD
     Dates: start: 20220711
  7. ULTRAVATE [BETAMETHASONE DIPROPIONATE] [Concomitant]
     Indication: Dermatitis atopic
     Dosage: UNK UNK, QD
     Dates: start: 20220321

REACTIONS (3)
  - Eye pruritus [Unknown]
  - Eye irritation [Unknown]
  - Dry eye [Unknown]

NARRATIVE: CASE EVENT DATE: 20220601
